FAERS Safety Report 18490831 (Version 2)
Quarter: 2022Q1

REPORT INFORMATION
  Report Type: Spontaneous
  Country: DE (occurrence: DE)
  Receive Date: 20201111
  Receipt Date: 20220315
  Transmission Date: 20220424
  Serious: Yes (Hospitalization, Other)
  Sender: FDA-Public Use
  Company Number: DE-ADRED-05639-01

PATIENT
  Age: 81 Year
  Sex: Female

DRUGS (7)
  1. INSULIN GLARGINE [Suspect]
     Active Substance: INSULIN GLARGINE
     Dosage: 40 IU, 0-1-0-0 AMPULES
     Route: 058
  2. METFORMIN\SITAGLIPTIN [Suspect]
     Active Substance: METFORMIN\SITAGLIPTIN
     Dosage: 1-0-1-0, TABLETS
     Route: 048
  3. ZOPICLONE [Concomitant]
     Active Substance: ZOPICLONE
     Dosage: 3.75 MG IF NECESSARY
     Route: 048
  4. SIMVASTATIN [Concomitant]
     Active Substance: SIMVASTATIN
     Dosage: 0-0-0.5-0
     Route: 048
  5. MELPERONE [Concomitant]
     Active Substance: MELPERONE
     Dosage: 25 MG, BID 0-0-0-1
     Route: 048
  6. RAMIPRIL [Concomitant]
     Active Substance: RAMIPRIL
     Dosage: 5 MG, QD 1-0-0-0
     Route: 048
  7. METOPROLOL [Concomitant]
     Active Substance: METOPROLOL
     Dosage: 47.5 MG, BID 1-0-1-0,
     Route: 048

REACTIONS (4)
  - Loss of consciousness [Unknown]
  - General physical health deterioration [Unknown]
  - Fall [Unknown]
  - Hypoglycaemia [Unknown]
